FAERS Safety Report 8563833-6 (Version None)
Quarter: 2012Q3

REPORT INFORMATION
  Report Type: 
  Country: None (occurrence: None)
  Receive Date: 20120727
  Receipt Date: 20120727
  Transmission Date: 20120928
  Serious: Yes (Hospitalization)
  Sender: FDA-Public Use
  Company Number: None

PATIENT
  Age: 89 Year
  Sex: Male
  Weight: 80 kg

DRUGS (14)
  1. LORAZEPAM [Concomitant]
  2. NORVASC [Concomitant]
  3. SSI [Concomitant]
  4. ASPIRIN [Suspect]
     Dosage: 325 MG DAILY PO CHRONIC
     Route: 048
  5. SPIRONOLACTONE [Concomitant]
  6. LASIX [Concomitant]
  7. AFRIN [Concomitant]
  8. EN [Concomitant]
  9. DIOVAN [Concomitant]
  10. PRAVASTATIN [Concomitant]
  11. HUMALOG [Concomitant]
  12. ICAPE [Concomitant]
  13. METOPROLOL TARTRATE [Concomitant]
  14. MURINE TEARS [Concomitant]

REACTIONS (9)
  - GASTRIC DISORDER [None]
  - MELAENA [None]
  - SYNCOPE [None]
  - GASTRITIS [None]
  - RENAL FAILURE ACUTE [None]
  - UPPER GASTROINTESTINAL HAEMORRHAGE [None]
  - ANGINA PECTORIS [None]
  - HAEMORRHAGIC ANAEMIA [None]
  - HYPOVOLAEMIA [None]
